FAERS Safety Report 19182780 (Version 1)
Quarter: 2021Q2

REPORT INFORMATION
  Report Type: Other
  Country: FR (occurrence: FR)
  Receive Date: 20210426
  Receipt Date: 20210426
  Transmission Date: 20210717
  Serious: Yes (Life-Threatening, Hospitalization)
  Sender: FDA-Public Use
  Company Number: FR-ROCHE-2818377

PATIENT

DRUGS (2)
  1. RITUXIMAB. [Suspect]
     Active Substance: RITUXIMAB
     Indication: RHEUMATIC DISORDER
     Dosage: CONCENTRATE FOR SOLUTION FOR INFUSION
     Route: 041
  2. RITUXIMAB. [Suspect]
     Active Substance: RITUXIMAB
     Indication: MUSCULOSKELETAL DISORDER
     Dosage: CONCENTRATE FOR SOLUTION FOR INFUSION
     Route: 041

REACTIONS (1)
  - COVID-19 [Unknown]
